FAERS Safety Report 4894146-1 (Version None)
Quarter: 2006Q1

REPORT INFORMATION
  Report Type: 
  Country: None (occurrence: None)
  Receive Date: 20060127
  Receipt Date: 20050824
  Transmission Date: 20060701
  Serious: No
  Sender: FDA-Public Use
  Company Number: US-GLAXOSMITHKLINE-A0571619A

PATIENT
  Age: 55 Year
  Sex: Female

DRUGS (9)
  1. WELLBUTRIN [Suspect]
     Indication: BIPOLAR DISORDER
     Route: 048
  2. PROTONIX [Concomitant]
  3. LEXAPRO [Concomitant]
  4. ALBUTEROL SULFATE AUTOHALER [Concomitant]
  5. KLONOPIN [Concomitant]
  6. DUONEB [Concomitant]
  7. SINGULAIR [Concomitant]
  8. MUCINEX [Concomitant]
  9. HYDROCODONE BITARTRATE [Concomitant]

REACTIONS (2)
  - DRUG WITHDRAWAL SYNDROME [None]
  - HEADACHE [None]
